FAERS Safety Report 4557495-2 (Version None)
Quarter: 2005Q1

REPORT INFORMATION
  Report Type: 
  Country: None (occurrence: None)
  Receive Date: 20050103
  Receipt Date: 20040903
  Transmission Date: 20050727
  Serious: Yes (Other)
  Sender: FDA-Public Use
  Company Number: 2004UW18689

PATIENT
  Age: 70 Year
  Sex: Male
  Weight: 76.2043 kg

DRUGS (3)
  1. CRESTOR [Suspect]
     Indication: HYPERCHOLESTEROLAEMIA
     Dosage: 10 MG PO
     Route: 048
  2. HYTRIN [Concomitant]
  3. UNSPECIFIED BETA BLOCKER [Concomitant]

REACTIONS (3)
  - APATHY [None]
  - DEPRESSION [None]
  - LOSS OF LIBIDO [None]
